FAERS Safety Report 10595963 (Version 1)
Quarter: 2014Q4

REPORT INFORMATION
  Report Type: Report from Study
  Country: US (occurrence: US)
  Receive Date: 20141120
  Receipt Date: 20141120
  Transmission Date: 20150529
  Serious: Yes (Other)
  Sender: FDA-Public Use
  Company Number: US-JNJFOC-20141109887

PATIENT
  Sex: Female

DRUGS (1)
  1. REMICADE [Suspect]
     Active Substance: INFLIXIMAB
     Indication: PRODUCT USED FOR UNKNOWN INDICATION
     Route: 042

REACTIONS (4)
  - Coronary artery bypass [Unknown]
  - Lower limb fracture [Not Recovered/Not Resolved]
  - Breast cancer [Not Recovered/Not Resolved]
  - Breast neoplasm [Recovered/Resolved]

NARRATIVE: CASE EVENT DATE: 2005
